FAERS Safety Report 9263393 (Version 1)
Quarter: 2013Q2

REPORT INFORMATION
  Report Type: Spontaneous
  Country: US (occurrence: US)
  Receive Date: 20130430
  Receipt Date: 20130430
  Transmission Date: 20140414
  Serious: No
  Sender: FDA-Public Use
  Company Number: US-ABBOTT-13P-163-1082128-00

PATIENT
  Sex: Female
  Weight: 34.05 kg

DRUGS (1)
  1. CREON [Suspect]
     Indication: PRODUCT USED FOR UNKNOWN INDICATION
     Dosage: WITH MEALS

REACTIONS (1)
  - Incorrect dose administered [Unknown]
